FAERS Safety Report 13937049 (Version 2)
Quarter: 2018Q1

REPORT INFORMATION
  Report Type: Report from Study
  Country: US (occurrence: US)
  Receive Date: 20170905
  Receipt Date: 20180125
  Transmission Date: 20180508
  Serious: Yes (Other)
  Sender: FDA-Public Use
  Company Number: US-BAYER-2017-131245

PATIENT
  Age: 65 Year
  Sex: Female
  Weight: 73.47 kg

DRUGS (4)
  1. LASIX [Concomitant]
     Active Substance: FUROSEMIDE
     Dosage: UNK
  2. ADEMPAS [Suspect]
     Active Substance: RIOCIGUAT
     Indication: PULMONARY ARTERIAL HYPERTENSION
     Dosage: 2.5 MG, TID
     Route: 048
  3. ADEMPAS [Suspect]
     Active Substance: RIOCIGUAT
     Indication: PULMONARY ARTERIAL HYPERTENSION
     Dosage: 2.5 MG, TID
     Route: 048
  4. ADEMPAS [Suspect]
     Active Substance: RIOCIGUAT
     Indication: PULMONARY ARTERIAL HYPERTENSION
     Dosage: UNK
     Route: 048
     Dates: start: 20170202

REACTIONS (13)
  - Peripheral swelling [Unknown]
  - Malaise [Unknown]
  - Dyspnoea [Unknown]
  - Respiratory tract congestion [Unknown]
  - Fungal skin infection [Unknown]
  - Blood erythropoietin abnormal [Unknown]
  - Vertigo positional [Unknown]
  - Haematocrit increased [None]
  - Hypobarism [None]
  - Weight increased [Unknown]
  - Oedema peripheral [Unknown]
  - Blood disorder [Unknown]
  - Cough [Unknown]

NARRATIVE: CASE EVENT DATE: 2017
